FAERS Safety Report 8470724-8 (Version None)
Quarter: 2012Q2

REPORT INFORMATION
  Report Type: 
  Country: None (occurrence: None)
  Receive Date: 20120627
  Receipt Date: 20120618
  Transmission Date: 20120825
  Serious: Yes (Other)
  Sender: FDA-Public Use
  Company Number: US-SANOFI-AVENTIS-2012SA043667

PATIENT
  Age: 56 Year
  Sex: Female

DRUGS (1)
  1. LOVENOX [Suspect]

REACTIONS (5)
  - INJECTION SITE REACTION [None]
  - PULMONARY EMBOLISM [None]
  - SOFT TISSUE INFECTION [None]
  - INJECTION SITE PRURITUS [None]
  - INJECTION SITE ERYTHEMA [None]
